FAERS Safety Report 7631266-2 (Version None)
Quarter: 2011Q3

REPORT INFORMATION
  Report Type: 
  Country: None (occurrence: None)
  Receive Date: 20110725
  Receipt Date: 20110718
  Transmission Date: 20111222
  Serious: Yes (Life-Threatening, Other)
  Sender: FDA-Public Use
  Company Number: US-ELI_LILLY_AND_COMPANY-US201107005324

PATIENT
  Age: 76 Year
  Sex: Female

DRUGS (1)
  1. GLUCAGON [Suspect]
     Indication: GASTROINTESTINAL DISORDER
     Dosage: 1 MG, UNKNOWN
     Route: 042

REACTIONS (4)
  - PHAEOCHROMOCYTOMA CRISIS [None]
  - MULTI-ORGAN FAILURE [None]
  - HYPERTENSIVE ENCEPHALOPATHY [None]
  - STRESS CARDIOMYOPATHY [None]
